FAERS Safety Report 10880840 (Version 2)
Quarter: 2016Q3

REPORT INFORMATION
  Report Type: Spontaneous
  Country: GB (occurrence: GB)
  Receive Date: 20150303
  Receipt Date: 20160815
  Transmission Date: 20161109
  Serious: Yes (Other)
  Sender: FDA-Public Use
  Company Number: GB-009507513-1502GBR011952

PATIENT
  Age: 57 Year
  Sex: Female
  Weight: 76.5 kg

DRUGS (13)
  1. ACETAMINOPHEN. [Concomitant]
     Active Substance: ACETAMINOPHEN
     Dosage: 1 G QID AS REQUIRED
     Route: 048
  2. ATORVASTATIN [Concomitant]
     Active Substance: ATORVASTATIN
     Dosage: 40 MG, QD, AT NIGHT
     Route: 048
  3. OMEPRAZOLE. [Concomitant]
     Active Substance: OMEPRAZOLE
     Dosage: 20 MG BID
     Route: 048
  4. GLICLAZIDE [Concomitant]
     Active Substance: GLICLAZIDE
     Dosage: 2 DF, BID
     Route: 048
  5. GAVISCON ADVANCE [Concomitant]
     Active Substance: POTASSIUM BICARBONATE\SODIUM ALGINATE
     Dosage: SODIUM ALGINATE 500MG/5ML / POTASSIUM BICARBONATE 100MG/5ML ORAL SUSPENSION SUGAR FREE, 5 ML AS NEED
     Route: 048
  6. AMITRIPTYLINE HYDROCHLORIDE. [Concomitant]
     Active Substance: AMITRIPTYLINE HYDROCHLORIDE
     Dosage: 50 MG, QD, AT NIGHT
     Route: 048
  7. GABAPENTIN. [Concomitant]
     Active Substance: GABAPENTIN
     Dosage: 100 MG, QD, EXTRA IF WISHES FOR PAIN
     Route: 048
  8. SIMVASTATIN. [Concomitant]
     Active Substance: SIMVASTATIN
  9. METFORMIN [Concomitant]
     Active Substance: METFORMIN HYDROCHLORIDE
     Dosage: 1 G TID WITH MEALS
     Route: 048
  10. CETOMACROGOL 1000 [Concomitant]
     Dosage: USE MOISTURIZER AND SOAP
  11. HYPROMELLOSE [Concomitant]
     Active Substance: HYPROMELLOSES
     Dosage: AS NECESSARY
     Route: 050
  12. FLUOXETINE [Concomitant]
     Active Substance: FLUOXETINE HYDROCHLORIDE
     Dosage: 1 DF QD IN THE MORNING
     Route: 048
  13. SITAGLIPTIN PHOSPHATE [Suspect]
     Active Substance: SITAGLIPTIN PHOSPHATE
     Indication: TYPE 2 DIABETES MELLITUS
     Dosage: 100 MG, QD, TAKEN IN MORNING
     Route: 048
     Dates: start: 20090921

REACTIONS (1)
  - Neuroendocrine tumour [Recovered/Resolved]

NARRATIVE: CASE EVENT DATE: 20131231
